FAERS Safety Report 19881483 (Version 1)
Quarter: 2021Q3

REPORT INFORMATION
  Report Type: Spontaneous
  Country: US (occurrence: US)
  Receive Date: 20210924
  Receipt Date: 20210924
  Transmission Date: 20211014
  Serious: Yes (Other)
  Sender: FDA-Public Use
  Company Number: US-AMGEN-USASP2021144540

PATIENT
  Age: 73 Year
  Sex: Female

DRUGS (6)
  1. CLOPIDOGREL [Concomitant]
     Active Substance: CLOPIDOGREL BISULFATE
  2. ISOSORBIDE. [Concomitant]
     Active Substance: ISOSORBIDE
  3. VITAMIN D [COLECALCIFEROL] [Concomitant]
     Active Substance: CHOLECALCIFEROL
  4. METOPROLOL. [Concomitant]
     Active Substance: METOPROLOL
  5. COVID?19 VACCINE [Concomitant]
     Dosage: UNK
     Dates: start: 202104
  6. REPATHA [Suspect]
     Active Substance: EVOLOCUMAB
     Indication: BLOOD CHOLESTEROL INCREASED
     Dosage: 140 MILLIGRAM, Q2WK
     Route: 065
     Dates: start: 202001

REACTIONS (3)
  - Blood cholesterol increased [Not Recovered/Not Resolved]
  - Injection site pain [Unknown]
  - Cardiac failure [Unknown]

NARRATIVE: CASE EVENT DATE: 2020
